FAERS Safety Report 21015758 (Version 1)
Quarter: 2022Q3

REPORT INFORMATION
  Report Type: Report from Study
  Country: IN (occurrence: IN)
  Receive Date: 20220628
  Receipt Date: 20220628
  Transmission Date: 20221027
  Serious: Yes (Death, Hospitalization)
  Sender: FDA-Public Use
  Company Number: IN-NOVARTISPH-NVSC2022IN146772

PATIENT
  Age: 41 Year
  Sex: Female

DRUGS (1)
  1. TASIGNA [Suspect]
     Active Substance: NILOTINIB
     Indication: Chronic myeloid leukaemia
     Dosage: 150 MG, BID
     Route: 065
     Dates: start: 20210723, end: 20220116

REACTIONS (2)
  - Death [Fatal]
  - Dengue fever [Unknown]

NARRATIVE: CASE EVENT DATE: 20220117
